FAERS Safety Report 8941511 (Version 1)
Quarter: 2012Q4

REPORT INFORMATION
  Report Type: 
  Country: US (occurrence: US)
  Receive Date: 20121203
  Receipt Date: 20121203
  Transmission Date: 20130627
  Serious: Yes (Hospitalization)
  Sender: FDA-Public Use
  Company Number: US-WATSON-2012-20727

PATIENT
  Sex: Male

DRUGS (1)
  1. METOPROLOL SUCCINATE (WATSON) [Suspect]
     Indication: HYPERTENSION
     Dosage: UNK
     Route: 048

REACTIONS (3)
  - Blood pressure increased [Unknown]
  - Burning sensation [Unknown]
  - Paraesthesia [Unknown]
